FAERS Safety Report 12699447 (Version 1)
Quarter: 2016Q3

REPORT INFORMATION
  Report Type: Spontaneous
  Country: DE (occurrence: DE)
  Receive Date: 20160830
  Receipt Date: 20160830
  Transmission Date: 20161109
  Serious: Yes (Hospitalization)
  Sender: FDA-Public Use
  Company Number: DE-JNJFOC-20160817756

PATIENT
  Age: 57 Year
  Sex: Male
  Weight: 95 kg

DRUGS (2)
  1. PREDNISOLONE. [Concomitant]
     Active Substance: PREDNISOLONE
     Indication: PROSTATE CANCER
     Route: 048
     Dates: start: 20160707
  2. ZYTIGA [Suspect]
     Active Substance: ABIRATERONE ACETATE
     Indication: PROSTATE CANCER
     Route: 048
     Dates: start: 20160707

REACTIONS (2)
  - Anaemia [Not Recovered/Not Resolved]
  - Blast cell crisis [Not Recovered/Not Resolved]

NARRATIVE: CASE EVENT DATE: 20160808
